FAERS Safety Report 23178862 (Version 1)
Quarter: 2023Q4

REPORT INFORMATION
  Report Type: Spontaneous
  Country: CN (occurrence: CN)
  Receive Date: 20231113
  Receipt Date: 20231113
  Transmission Date: 20240109
  Serious: Yes (Hospitalization)
  Sender: FDA-Public Use
  Company Number: CN-PFIZER INC-PV202300182010

PATIENT
  Age: 78 Year
  Sex: Female
  Weight: 45 kg

DRUGS (2)
  1. TYGACIL [Suspect]
     Active Substance: TIGECYCLINE
     Indication: Peritonitis
     Dosage: 50 MG, 2X/DAY
     Route: 041
     Dates: start: 20231015, end: 20231021
  2. SODIUM CHLORIDE [Concomitant]
     Active Substance: SODIUM CHLORIDE
     Indication: Peritonitis
     Dosage: 100 ML, 2X/DAY
     Route: 041
     Dates: start: 20231015, end: 20231021

REACTIONS (3)
  - Ocular icterus [Unknown]
  - Yellow skin [Unknown]
  - Hepatic function abnormal [Not Recovered/Not Resolved]

NARRATIVE: CASE EVENT DATE: 20231021
